FAERS Safety Report 6102478-4 (Version None)
Quarter: 2009Q1

REPORT INFORMATION
  Report Type: 
  Country: None (occurrence: None)
  Receive Date: 20090304
  Receipt Date: 20090303
  Transmission Date: 20090719
  Serious: Yes (Other)
  Sender: FDA-Public Use
  Company Number: GB-BRISTOL-MYERS SQUIBB COMPANY-14218549

PATIENT
  Age: 38 Year
  Sex: Female

DRUGS (5)
  1. REYATAZ [Suspect]
     Indication: HIV INFECTION
     Dosage: 800MG
     Route: 048
     Dates: start: 20020101
  2. DIDANOSINE [Suspect]
     Indication: HIV INFECTION
     Dosage: 1 IN 1 DAY,6YRS
     Route: 048
     Dates: start: 20020101, end: 20080630
  3. VIREAD [Suspect]
     Indication: HIV INFECTION
     Route: 048
     Dates: start: 20020101, end: 20080630
  4. RITONAVIR [Suspect]
     Indication: HIV INFECTION
     Dosage: 1 IN 1 DAY,NI- STOPPED.
     Route: 048
     Dates: start: 20020101
  5. TRUVADA [Suspect]
     Indication: HIV INFECTION
     Dosage: 1 DOSAGE FORM=1 .UNITS NOT SPECIFIED DURATION 1 DAYS 30JUN08-30JUN08.
     Route: 048
     Dates: start: 20080630, end: 20080630

REACTIONS (3)
  - CAESAREAN SECTION [None]
  - NORMAL NEWBORN [None]
  - PREGNANCY [None]
